FAERS Safety Report 4292767-0 (Version None)
Quarter: 2004Q1

REPORT INFORMATION
  Report Type: 
  Country: None (occurrence: None)
  Receive Date: 20040126
  Receipt Date: 20031117
  Transmission Date: 20041129
  Serious: No
  Sender: FDA-Public Use
  Company Number: USA031049656

PATIENT

DRUGS (1)
  1. FORTEO [Suspect]

REACTIONS (2)
  - COLITIS [None]
  - HYPERSENSITIVITY [None]
